FAERS Safety Report 23277167 (Version 13)
Quarter: 2025Q1

REPORT INFORMATION
  Report Type: Spontaneous
  Country: BR (occurrence: BR)
  Receive Date: 20231208
  Receipt Date: 20250116
  Transmission Date: 20250409
  Serious: Yes (Other)
  Sender: ALCON
  Company Number: BR-ALCON LABORATORIES-ALC2023BR005533

PATIENT
  Age: 65 Year
  Sex: Female

DRUGS (2)
  1. MYDRIACYL [Suspect]
     Active Substance: TROPICAMIDE
     Indication: Mydriasis
     Route: 065
  2. MYDRIACYL [Suspect]
     Active Substance: TROPICAMIDE
     Indication: Ocular discomfort

REACTIONS (35)
  - Visual impairment [Not Recovered/Not Resolved]
  - Optic nerve cupping [Unknown]
  - Glaucoma [Unknown]
  - Confusional state [Unknown]
  - Eye injury [Unknown]
  - Malaise [Unknown]
  - Blepharitis [Unknown]
  - Retinal disorder [Unknown]
  - Dry eye [Unknown]
  - Crying [Unknown]
  - Tension headache [Unknown]
  - Fatigue [Unknown]
  - Intraocular pressure test [Unknown]
  - Eye disorder [Unknown]
  - Depressed mood [Unknown]
  - Ocular discomfort [Unknown]
  - Hypersensitivity [Unknown]
  - Ocular discomfort [Unknown]
  - Dark circles under eyes [Unknown]
  - Insomnia [Unknown]
  - Visual brightness [Unknown]
  - Feeling abnormal [Unknown]
  - Asthenia [Unknown]
  - Intraocular pressure increased [Recovered/Resolved]
  - Dizziness [Unknown]
  - Eye irritation [Unknown]
  - Vision blurred [Not Recovered/Not Resolved]
  - Headache [Unknown]
  - Discomfort [Unknown]
  - Pain [Unknown]
  - Nausea [Unknown]
  - Eye pain [Not Recovered/Not Resolved]
  - Vision blurred [Unknown]
  - Dysgraphia [Unknown]
  - Illness [Unknown]

NARRATIVE: CASE EVENT DATE: 20230529
